FAERS Safety Report 12074696 (Version 1)
Quarter: 2016Q1

REPORT INFORMATION
  Report Type: Spontaneous
  Country: KR (occurrence: KR)
  Receive Date: 20160212
  Receipt Date: 20160212
  Transmission Date: 20160526
  Serious: Yes (Other)
  Sender: FDA-Public Use
  Company Number: KR-SA-2016SA022237

PATIENT
  Age: 66 Year
  Sex: Male

DRUGS (3)
  1. HUONS KAROS SUSPENSION [Concomitant]
     Indication: HYPERKALAEMIA
  2. RENALMIN [Concomitant]
     Indication: HYPERKALAEMIA
  3. TRENTAL [Suspect]
     Active Substance: PENTOXIFYLLINE
     Indication: HYPERKALAEMIA
     Route: 048
     Dates: start: 2014

REACTIONS (2)
  - Off label use [Unknown]
  - Nephrolithiasis [Unknown]
